FAERS Safety Report 24728406 (Version 4)
Quarter: 2025Q1

REPORT INFORMATION
  Report Type: Spontaneous
  Country: US (occurrence: US)
  Receive Date: 20241212
  Receipt Date: 20250116
  Transmission Date: 20250408
  Serious: Yes (Hospitalization, Other)
  Sender: PFIZER
  Company Number: US-PFIZER INC-PV202400160551

PATIENT
  Age: 77 Year
  Sex: Female
  Weight: 80.5 kg

DRUGS (4)
  1. IBRANCE [Suspect]
     Active Substance: PALBOCICLIB
     Indication: Breast cancer metastatic
     Route: 048
     Dates: start: 202102, end: 20241231
  2. IBRANCE [Suspect]
     Active Substance: PALBOCICLIB
     Indication: Hormone receptor positive breast cancer
  3. FULVESTRANT [Concomitant]
     Active Substance: FULVESTRANT
     Dates: start: 202102
  4. DENOSUMAB [Concomitant]
     Active Substance: DENOSUMAB

REACTIONS (4)
  - Streptococcal bacteraemia [Unknown]
  - Cellulitis [Unknown]
  - Atrial fibrillation [Unknown]
  - Neoplasm progression [Unknown]
